FAERS Safety Report 9680826 (Version 1)
Quarter: 2013Q4

REPORT INFORMATION
  Report Type: Spontaneous
  Country: TR (occurrence: TR)
  Receive Date: 20131111
  Receipt Date: 20131111
  Transmission Date: 20140711
  Serious: Yes (Death, Other)
  Sender: FDA-Public Use
  Company Number: PHHY2013TR126034

PATIENT
  Age: 19 Year
  Sex: Male

DRUGS (3)
  1. CICLOSPORIN [Suspect]
     Indication: PROPHYLAXIS AGAINST GRAFT VERSUS HOST DISEASE
  2. METHOTREXATE [Suspect]
     Indication: PROPHYLAXIS AGAINST GRAFT VERSUS HOST DISEASE
  3. CYCLOPHOSPHAMIDE [Concomitant]
     Dosage: 120 MG/KG, UNK

REACTIONS (13)
  - Coma hepatic [Fatal]
  - Electrolyte imbalance [Recovered/Resolved]
  - Vanishing bile duct syndrome [Recovered/Resolved]
  - Haemosiderosis [Unknown]
  - Malnutrition [Unknown]
  - Cholestasis [Unknown]
  - Jaundice [Unknown]
  - Pneumonia staphylococcal [Unknown]
  - Graft versus host disease in skin [Recovering/Resolving]
  - Rash [Recovering/Resolving]
  - Graft versus host disease in intestine [Recovering/Resolving]
  - Abdominal pain [Recovering/Resolving]
  - Diarrhoea [Recovering/Resolving]
